FAERS Safety Report 4745408-X (Version None)
Quarter: 2005Q3

REPORT INFORMATION
  Report Type: 
  Country: None (occurrence: None)
  Receive Date: 20050812
  Receipt Date: 20050201
  Transmission Date: 20060218
  Serious: Yes (Other)
  Sender: FDA-Public Use
  Company Number: PHEH2005US01420

PATIENT
  Age: 82 Year
  Sex: Female

DRUGS (2)
  1. VISUDYNE [Suspect]
     Indication: MACULAR DEGENERATION
     Dates: start: 20041209, end: 20041209
  2. VISUDYNE [Suspect]
     Indication: MACULAR DEGENERATION
     Dates: start: 20050103, end: 20050103

REACTIONS (3)
  - CONDITION AGGRAVATED [None]
  - VISUAL ACUITY REDUCED [None]
  - VISUAL DISTURBANCE [None]
